FAERS Safety Report 19517493 (Version 2)
Quarter: 2021Q3

REPORT INFORMATION
  Report Type: Report from Study
  Country: None (occurrence: DE)
  Receive Date: 20210712
  Receipt Date: 20210712
  Transmission Date: 20211014
  Serious: Yes (Death)
  Sender: FDA-Public Use
  Company Number: DE-ABBVIE-21K-062-3984774-00

PATIENT
  Age: 46 Year
  Sex: Male
  Weight: 73 kg

DRUGS (2)
  1. DIPIPERON [Concomitant]
     Active Substance: PIPAMPERONE
     Indication: DEPENDENCE
  2. MAVIRET [Suspect]
     Active Substance: GLECAPREVIR\PIBRENTASVIR
     Indication: CHRONIC HEPATITIS C
     Dosage: 100 MILLIGRAMS GLECAPREVIR/40 MILLIGRAMS PIBRENTASVIR TABLETS
     Route: 048
     Dates: start: 20210525, end: 20210621

REACTIONS (2)
  - Sepsis [Fatal]
  - Abscess [Fatal]

NARRATIVE: CASE EVENT DATE: 2021
